FAERS Safety Report 18114119 (Version 4)
Quarter: 2022Q4

REPORT INFORMATION
  Report Type: Report from Study
  Country: MX (occurrence: MX)
  Receive Date: 20200805
  Receipt Date: 20221103
  Transmission Date: 20230113
  Serious: Yes (Hospitalization, Other)
  Sender: FDA-Public Use
  Company Number: MX-NOVARTISPH-NVSC2020MX217607

PATIENT
  Age: 13 Year
  Sex: Male
  Weight: 30 kg

DRUGS (3)
  1. TRILEPTAL [Suspect]
     Active Substance: OXCARBAZEPINE
     Indication: Epilepsy
     Dosage: 9 DOSAGE FORM, BID (600MG /1ML)
     Route: 048
     Dates: start: 2008
  2. TRILEPTAL [Suspect]
     Active Substance: OXCARBAZEPINE
     Dosage: 9 ML, Q12H
     Route: 048
     Dates: start: 2008
  3. TRILEPTAL [Suspect]
     Active Substance: OXCARBAZEPINE
     Dosage: 2 ML, BID (60  MG)
     Route: 048
     Dates: start: 200902

REACTIONS (9)
  - Seizure [Recovered/Resolved]
  - Autism spectrum disorder [Not Recovered/Not Resolved]
  - Speech disorder [Unknown]
  - Psychomotor hyperactivity [Not Recovered/Not Resolved]
  - Mood altered [Not Recovered/Not Resolved]
  - Product quality issue [Unknown]
  - Product barcode issue [Unknown]
  - Product packaging issue [Unknown]
  - Suspected counterfeit product [Unknown]

NARRATIVE: CASE EVENT DATE: 20221017
